FAERS Safety Report 13880388 (Version 1)
Quarter: 2017Q3

REPORT INFORMATION
  Report Type: Spontaneous
  Country: US (occurrence: US)
  Receive Date: 20170815
  Receipt Date: 20170815
  Transmission Date: 20171127
  Serious: Yes (Other)
  Sender: FDA-Public Use
  Company Number: None

PATIENT
  Sex: Female
  Weight: 54.45 kg

DRUGS (6)
  1. BONINE [Suspect]
     Active Substance: MECLIZINE HYDROCHLORIDE
     Indication: MOTION SICKNESS
     Dosage: ?          QUANTITY:1 TABLET(S);OTHER FREQUENCY:UP TO TWICE A DAY;?
     Route: 048
     Dates: start: 20170814, end: 20170814
  2. MELATONIN [Concomitant]
     Active Substance: MELATONIN
  3. IBUPROFEN. [Concomitant]
     Active Substance: IBUPROFEN
  4. TOPAMAX [Concomitant]
     Active Substance: TOPIRAMATE
  5. BENTYL [Concomitant]
     Active Substance: DICYCLOMINE HYDROCHLORIDE
  6. SPRINTEC [Concomitant]
     Active Substance: ETHINYL ESTRADIOL\NORGESTIMATE

REACTIONS (7)
  - Judgement impaired [None]
  - Confusional state [None]
  - Performance status decreased [None]
  - Somnolence [None]
  - Bradyphrenia [None]
  - Dizziness [None]
  - Eye disorder [None]

NARRATIVE: CASE EVENT DATE: 20170814
